FAERS Safety Report 5131924-8 (Version None)
Quarter: 2006Q4

REPORT INFORMATION
  Report Type: 
  Country: None (occurrence: None)
  Receive Date: 20061016
  Receipt Date: 20060928
  Transmission Date: 20070319
  Serious: Yes (Hospitalization, Other)
  Sender: FDA-Public Use
  Company Number: 2006120409

PATIENT
  Sex: Female

DRUGS (3)
  1. CELEBREX [Suspect]
     Dates: start: 20041001, end: 20051201
  2. BEXTRA [Suspect]
     Dates: start: 20041001, end: 20050401
  3. VIOXX [Suspect]
     Dosage: ORAL
     Route: 048
     Dates: start: 20000601, end: 20040930

REACTIONS (4)
  - HEMIPARESIS [None]
  - LOWER LIMB FRACTURE [None]
  - STENT PLACEMENT [None]
  - THROMBOSIS [None]
